FAERS Safety Report 24833955 (Version 1)
Quarter: 2025Q1

REPORT INFORMATION
  Report Type: Report from Study
  Country: US (occurrence: US)
  Receive Date: 20250112
  Receipt Date: 20250112
  Transmission Date: 20250409
  Serious: Yes (Hospitalization, Other)
  Sender: JOHNSON AND JOHNSON
  Company Number: US-JNJFOC-20241292001

PATIENT
  Age: 72 Year
  Sex: Female
  Weight: 58.513 kg

DRUGS (5)
  1. VELETRI [Suspect]
     Active Substance: EPOPROSTENOL
     Indication: Pulmonary hypertension
     Route: 042
  2. VELETRI [Suspect]
     Active Substance: EPOPROSTENOL
     Route: 065
  3. ELIQUIS [Concomitant]
     Active Substance: APIXABAN
  4. LETAIRIS [Concomitant]
     Active Substance: AMBRISENTAN
  5. AMLODIPINE [Concomitant]
     Active Substance: AMLODIPINE BESYLATE

REACTIONS (13)
  - Abdominal operation [Unknown]
  - Vomiting [Unknown]
  - Diarrhoea [Unknown]
  - Abdominal pain [Unknown]
  - Haemorrhage [Unknown]
  - Device occlusion [Unknown]
  - Complication associated with device [Unknown]
  - Wound [Unknown]
  - Inadequate diet [Unknown]
  - Herpes zoster [Unknown]
  - Product administration interrupted [Unknown]
  - Fatigue [Unknown]
  - Weight decreased [Unknown]

NARRATIVE: CASE EVENT DATE: 20241204
